FAERS Safety Report 5926167-1 (Version None)
Quarter: 2008Q4

REPORT INFORMATION
  Report Type: 
  Country: None (occurrence: None)
  Receive Date: 20081017
  Receipt Date: 20081009
  Transmission Date: 20090506
  Serious: Yes (Hospitalization)
  Sender: FDA-Public Use
  Company Number: 2008BI003146

PATIENT
  Age: 46 Year
  Sex: Female

DRUGS (3)
  1. AVONEX [Suspect]
     Indication: MULTIPLE SCLEROSIS
     Dosage: 30 UG; QW; IM
     Route: 030
     Dates: start: 20000428, end: 20060512
  2. CON MEDS [Concomitant]
  3. PREV MEDS [Concomitant]

REACTIONS (5)
  - BREAST CANCER FEMALE [None]
  - HYPOAESTHESIA [None]
  - NECK PAIN [None]
  - PARAESTHESIA [None]
  - THYROID CANCER [None]
